FAERS Safety Report 15149031 (Version 1)
Quarter: 2018Q4

REPORT INFORMATION
  Report Type: Report from Study
  Country: US (occurrence: US)
  Receive Date: 20180716
  Receipt Date: 20180716
  Transmission Date: 20190204
  Serious: Yes (Other)
  Sender: FDA-Public Use
  Company Number: US-BAYER-2018-130660

PATIENT
  Sex: Female

DRUGS (1)
  1. BETASERON [Suspect]
     Active Substance: INTERFERON BETA-1B
     Indication: MULTIPLE SCLEROSIS
     Dosage: 0.25 MG/ML, QOD
     Dates: start: 2002

REACTIONS (5)
  - Injection site haemorrhage [None]
  - Depression [None]
  - Fatigue [None]
  - Facial neuralgia [None]
  - Temperature intolerance [None]
